FAERS Safety Report 9791749 (Version 3)
Quarter: 2014Q1

REPORT INFORMATION
  Report Type: Spontaneous
  Country: JP (occurrence: JP)
  Receive Date: 20140102
  Receipt Date: 20140327
  Transmission Date: 20141002
  Serious: Yes (Hospitalization)
  Sender: FDA-Public Use
  Company Number: JP-ROCHE-1313965

PATIENT
  Age: 36 Year
  Sex: Female

DRUGS (14)
  1. RITUXIMAB [Suspect]
     Indication: THROMBOTIC THROMBOCYTOPENIC PURPURA
     Route: 042
     Dates: start: 20131101
  2. RITUXIMAB [Suspect]
     Route: 042
     Dates: start: 20131107
  3. RITUXIMAB [Suspect]
     Route: 042
     Dates: start: 20131114
  4. RITUXIMAB [Suspect]
     Route: 042
     Dates: start: 20131121
  5. BONOTEO [Suspect]
     Indication: PROPHYLAXIS
     Route: 048
     Dates: start: 20131127
  6. BENAMBAX [Suspect]
     Indication: INFECTION PROPHYLAXIS
     Dosage: ROUTE: IH
     Route: 065
     Dates: start: 20131027, end: 20131127
  7. KEFLEX [Suspect]
     Indication: PRODUCT USED FOR UNKNOWN INDICATION
     Route: 048
     Dates: start: 20131111, end: 20131127
  8. LENDORMIN [Suspect]
     Indication: INSOMNIA
     Route: 048
     Dates: start: 20131114, end: 20131126
  9. SEROQUEL [Suspect]
     Indication: INSOMNIA
     Route: 048
     Dates: start: 20131114, end: 20131126
  10. PREDONINE [Suspect]
     Indication: IMMUNE THROMBOCYTOPENIC PURPURA
     Route: 048
     Dates: start: 20131027
  11. CLINORIL [Suspect]
     Indication: PAIN
     Route: 048
     Dates: start: 20131028, end: 20131103
  12. FAMOTIDINE [Concomitant]
  13. CHLORPHENIRAMINE MALEATE [Concomitant]
  14. NORADRENALINE [Concomitant]

REACTIONS (1)
  - Erythema multiforme [Recovering/Resolving]
